FAERS Safety Report 7855514-9 (Version None)
Quarter: 2011Q4

REPORT INFORMATION
  Report Type: 
  Country: None (occurrence: None)
  Receive Date: 20111026
  Receipt Date: 20111011
  Transmission Date: 20120403
  Serious: Yes (Death)
  Sender: FDA-Public Use
  Company Number: JP-ROCHE-1001082

PATIENT
  Sex: Male
  Weight: 54 kg

DRUGS (6)
  1. DECADRON PHOSPHATE [Concomitant]
     Indication: PROPHYLAXIS
     Route: 065
     Dates: start: 20110921, end: 20110921
  2. PANVITAN [Concomitant]
     Indication: PROPHYLAXIS
     Route: 048
     Dates: start: 20110913, end: 20110926
  3. GRANISETRON [Concomitant]
     Indication: PROPHYLAXIS
     Route: 065
     Dates: start: 20110921, end: 20110921
  4. VITAMIN B-12 [Concomitant]
     Indication: PROPHYLAXIS
     Route: 065
     Dates: start: 20110913
  5. AVASTIN [Suspect]
     Indication: NON-SMALL CELL LUNG CANCER
     Dosage: 15 DOSE
     Route: 041
     Dates: start: 20110921, end: 20110921
  6. ALIMTA [Suspect]
     Indication: NON-SMALL CELL LUNG CANCER
     Dosage: DOSAGE IS UNCERTAIN.
     Route: 041

REACTIONS (3)
  - GENERAL PHYSICAL HEALTH DETERIORATION [None]
  - DECREASED APPETITE [None]
  - HYPERSENSITIVITY [None]
